FAERS Safety Report 7564364-2 (Version None)
Quarter: 2011Q2

REPORT INFORMATION
  Report Type: 
  Country: None (occurrence: None)
  Receive Date: 20110622
  Receipt Date: 20110609
  Transmission Date: 20111010
  Serious: Yes (Other)
  Sender: FDA-Public Use
  Company Number: PHHY2011GR51203

PATIENT
  Age: 34 Year
  Sex: Female

DRUGS (3)
  1. DEFERIPRONE [Concomitant]
     Indication: THALASSAEMIA BETA
     Dosage: 75 MG, UNK
  2. DEFERASIROX [Suspect]
     Indication: THALASSAEMIA BETA
     Dosage: 20 MG, DAILY
     Dates: start: 20060101
  3. DEFERASIROX [Suspect]
     Dosage: 30 MG, DAILY

REACTIONS (3)
  - ATRIAL FIBRILLATION [None]
  - CARDIAC SIDEROSIS [None]
  - HEPATIC SIDEROSIS [None]
